FAERS Safety Report 24634044 (Version 2)
Quarter: 2025Q1

REPORT INFORMATION
  Report Type: Spontaneous
  Country: US (occurrence: US)
  Receive Date: 20241119
  Receipt Date: 20250120
  Transmission Date: 20250408
  Serious: Yes (Hospitalization)
  Sender: JOHNSON AND JOHNSON
  Company Number: US-JNJFOC-20241127092

PATIENT
  Sex: Male

DRUGS (1)
  1. RYBREVANT [Suspect]
     Active Substance: AMIVANTAMAB-VMJW
     Indication: Product used for unknown indication
     Route: 065

REACTIONS (2)
  - Infusion related reaction [Unknown]
  - Adverse event [Unknown]
